FAERS Safety Report 5285670-0 (Version None)
Quarter: 2007Q1

REPORT INFORMATION
  Report Type: 
  Country: None (occurrence: None)
  Receive Date: 20070126
  Receipt Date: 20061214
  Transmission Date: 20070707
  Serious: No
  Sender: FDA-Public Use
  Company Number: 012741

PATIENT
  Age: 44 Year
  Sex: Female

DRUGS (4)
  1. PRIALT [Suspect]
     Indication: NEUROPATHY
     Dosage: SEE IMAGE
     Route: 037
     Dates: start: 20060101, end: 20060721
  2. PRIALT [Suspect]
     Indication: NEUROPATHY
     Dosage: SEE IMAGE
     Route: 037
     Dates: start: 20060721, end: 20060901
  3. PRIALT [Suspect]
     Indication: NEUROPATHY
     Dosage: SEE IMAGE
     Route: 037
     Dates: start: 20051228
  4. MORPHINE [Concomitant]

REACTIONS (4)
  - BLOOD CREATINE PHOSPHOKINASE INCREASED [None]
  - MYALGIA [None]
  - URINARY INCONTINENCE [None]
  - URINARY TRACT INFECTION [None]
